FAERS Safety Report 10228720 (Version 1)
Quarter: 2014Q2

REPORT INFORMATION
  Report Type: Spontaneous
  Country: US (occurrence: US)
  Receive Date: 20140610
  Receipt Date: 20140610
  Transmission Date: 20141212
  Serious: Yes (Hospitalization)
  Sender: FDA-Public Use
  Company Number: US-009507513-1406USA004104

PATIENT
  Sex: Female

DRUGS (5)
  1. SINGULAIR [Suspect]
  2. ADVAIR DISKUS [Suspect]
     Indication: CHRONIC OBSTRUCTIVE PULMONARY DISEASE
     Dosage: 1 PUFF, BID
     Route: 055
  3. VENTOLIN (ALBUTEROL SULFATE) [Suspect]
     Indication: DYSPNOEA
     Dosage: 2 PUFFS, PRN
     Route: 055
  4. SPIRIVA [Concomitant]
  5. PREDNISONE [Concomitant]

REACTIONS (7)
  - Pneumonia [Unknown]
  - Respiratory arrest [Unknown]
  - Dyspnoea [Recovered/Resolved with Sequelae]
  - Wheezing [Recovered/Resolved with Sequelae]
  - Hospitalisation [Recovered/Resolved with Sequelae]
  - Chronic obstructive pulmonary disease [Not Recovered/Not Resolved]
  - Oxygen supplementation [Not Recovered/Not Resolved]
